FAERS Safety Report 25958582 (Version 1)
Quarter: 2025Q4

REPORT INFORMATION
  Report Type: Spontaneous
  Country: CN (occurrence: CN)
  Receive Date: 20251024
  Receipt Date: 20251024
  Transmission Date: 20260118
  Serious: Yes (Death)
  Sender: EISAI
  Company Number: CN-Eisai-EC-2025-198823

PATIENT
  Age: 47 Year
  Sex: Male

DRUGS (2)
  1. LENVATINIB [Suspect]
     Active Substance: LENVATINIB
     Indication: Hepatocellular carcinoma
     Route: 048
     Dates: start: 20200310
  2. PEMBROLIZUMAB [Suspect]
     Active Substance: PEMBROLIZUMAB
     Indication: Hepatocellular carcinoma
     Route: 042
     Dates: start: 20200310

REACTIONS (2)
  - Death [Fatal]
  - Product prescribing issue [Fatal]

NARRATIVE: CASE EVENT DATE: 20210320
